FAERS Safety Report 23702821 (Version 1)
Quarter: 2024Q2

REPORT INFORMATION
  Report Type: Spontaneous
  Country: US (occurrence: None)
  Receive Date: 20240403
  Receipt Date: 20240403
  Transmission Date: 20240715
  Serious: No
  Sender: FDA-Public Use
  Company Number: None

PATIENT
  Age: 57 Year
  Sex: Female
  Weight: 126.6 kg

DRUGS (1)
  1. CYTARABINE\DAUNORUBICIN [Suspect]
     Active Substance: CYTARABINE\DAUNORUBICIN
     Dosage: 146.16 MG
     Dates: end: 20240322

REACTIONS (15)
  - Infusion related reaction [None]
  - Fatigue [None]
  - Nausea [None]
  - Vomiting [None]
  - Pain in extremity [None]
  - Pain [None]
  - Chest pain [None]
  - Abdominal pain [None]
  - Body temperature increased [None]
  - Brachiocephalic vein thrombosis [None]
  - Subclavian vein thrombosis [None]
  - Lung consolidation [None]
  - Pleural effusion [None]
  - Platelet count decreased [None]
  - Epistaxis [None]

NARRATIVE: CASE EVENT DATE: 20240327
